FAERS Safety Report 7386938-4 (Version None)
Quarter: 2011Q1

REPORT INFORMATION
  Report Type: 
  Country: None (occurrence: None)
  Receive Date: 20110331
  Receipt Date: 20110323
  Transmission Date: 20110831
  Serious: Yes (Hospitalization)
  Sender: FDA-Public Use
  Company Number: US-AMGEN-USASP2011015801

PATIENT
  Age: 29 Year
  Sex: Female

DRUGS (1)
  1. ENBREL [Suspect]
     Indication: PSORIASIS
     Dosage: 50 MG, QWK
     Dates: start: 20060101

REACTIONS (9)
  - ROAD TRAFFIC ACCIDENT [None]
  - DYSPNOEA [None]
  - FRACTURED SACRUM [None]
  - STAPHYLOCOCCAL INFECTION [None]
  - CHEST PAIN [None]
  - PSORIASIS [None]
  - PELVIC FRACTURE [None]
  - SINUSITIS [None]
  - LUMBAR VERTEBRAL FRACTURE [None]
